FAERS Safety Report 21129488 (Version 1)
Quarter: 2022Q3

REPORT INFORMATION
  Report Type: Spontaneous
  Country: CN (occurrence: CN)
  Receive Date: 20220726
  Receipt Date: 20220726
  Transmission Date: 20221027
  Serious: Yes (Other)
  Sender: FDA-Public Use
  Company Number: CN-SUN PHARMACEUTICAL INDUSTRIES LTD-2022R1-345585

PATIENT
  Age: 68 Year
  Sex: Male

DRUGS (2)
  1. CARBOPLATIN [Suspect]
     Active Substance: CARBOPLATIN
     Indication: Chemotherapy
     Dosage: 80 MG.M.SQ
     Route: 042
  2. GEMCITABINE [Suspect]
     Active Substance: GEMCITABINE
     Indication: Chemotherapy
     Dosage: 1000 MG/M.SQ
     Route: 042

REACTIONS (1)
  - Metastasis [Unknown]
